FAERS Safety Report 11888591 (Version 1)
Quarter: 2016Q1

REPORT INFORMATION
  Report Type: Spontaneous
  Country: CN (occurrence: CN)
  Receive Date: 20160105
  Receipt Date: 20160105
  Transmission Date: 20160526
  Serious: Yes (Hospitalization)
  Sender: FDA-Public Use
  Company Number: CN-ASTELLAS-2016US000209

PATIENT
  Age: 35 Year
  Sex: Male

DRUGS (3)
  1. HYDROTALCITE [Suspect]
     Active Substance: HYDROTALCITE
     Indication: PRODUCT USED FOR UNKNOWN INDICATION
     Dosage: UNK UNK, THRICE DAILY
     Route: 048
     Dates: start: 20151215
  2. PROGRAF [Suspect]
     Active Substance: TACROLIMUS\TACROLIMUS ANHYDROUS
     Indication: PROPHYLAXIS AGAINST TRANSPLANT REJECTION
     Dosage: UNK, TWICE DAILY
     Route: 048
     Dates: start: 20151215
  3. HYDROTALCITE [Suspect]
     Active Substance: HYDROTALCITE
     Dosage: UNK, ONCE DAILY
     Route: 048
     Dates: end: 20151227

REACTIONS (2)
  - Diarrhoea [Recovering/Resolving]
  - Abdominal pain upper [Recovering/Resolving]

NARRATIVE: CASE EVENT DATE: 20151217
